FAERS Safety Report 19757967 (Version 1)
Quarter: 2021Q3

REPORT INFORMATION
  Report Type: Spontaneous
  Country: JP (occurrence: JP)
  Receive Date: 20210827
  Receipt Date: 20210827
  Transmission Date: 20211014
  Serious: Yes (Hospitalization, Other)
  Sender: FDA-Public Use
  Company Number: JP-GLAXOSMITHKLINE-JP2021GSK181730

PATIENT
  Age: 46 Year
  Sex: Female

DRUGS (2)
  1. LAMOTRIGINE. [Suspect]
     Active Substance: LAMOTRIGINE
     Indication: EPILEPSY
     Dosage: 150 G,  TAKING DOUBLE HER REGULAR DOSE
  2. TOPIRAMATE. [Suspect]
     Active Substance: TOPIRAMATE
     Indication: EPILEPSY
     Dosage: 50 G  TAKING DOUBLE HER REGULAR DOSE

REACTIONS (11)
  - Vomiting [Recovered/Resolved]
  - Toxicity to various agents [Recovered/Resolved]
  - Seizure [Recovered/Resolved]
  - Vertigo [Recovered/Resolved]
  - White blood cell count abnormal [Recovered/Resolved]
  - Nausea [Recovered/Resolved]
  - Accidental overdose [Unknown]
  - Heart rate increased [Recovered/Resolved]
  - Loss of consciousness [Recovered/Resolved]
  - Blood pressure increased [Recovered/Resolved]
  - Somnolence [Recovered/Resolved]
